FAERS Safety Report 14025511 (Version 1)
Quarter: 2017Q3

REPORT INFORMATION
  Report Type: Spontaneous
  Country: US (occurrence: US)
  Receive Date: 20170929
  Receipt Date: 20170929
  Transmission Date: 20171128
  Serious: No
  Sender: FDA-Public Use
  Company Number: US-B.I. PHARMACEUTICALS,INC./RIDGEFIELD-2017-BI-051780

PATIENT
  Sex: Female

DRUGS (6)
  1. COMBIVENT [Suspect]
     Active Substance: ALBUTEROL SULFATE\IPRATROPIUM BROMIDE
     Indication: ASTHMA
     Dosage: ONE INHALATION FOUR TIMES A DAY;  FORM STRENGTH/UNIT DOSE: 20 MCG / 100 MCG; DAILY DOSE: 80MCG/400 M
     Route: 055
  2. OLOPATADINE EYE DROPS [Concomitant]
     Indication: CONJUNCTIVITIS ALLERGIC
     Route: 065
  3. CYTOMEL [Concomitant]
     Active Substance: LIOTHYRONINE SODIUM
     Indication: HYPOTHYROIDISM
     Dosage: ONE CAPLET DAILY;  FORM STRENGTH: 15MG; FORMULATION: CAPLET
     Route: 048
  4. FLUOROMETHOLONE. [Concomitant]
     Active Substance: FLUOROMETHOLONE
     Indication: CONJUNCTIVITIS ALLERGIC
     Route: 065
  5. ARTIFICAL TEAR OINTMENT [Concomitant]
     Indication: CONJUNCTIVITIS ALLERGIC
     Route: 065
  6. TIROSINT [Concomitant]
     Active Substance: LEVOTHYROXINE SODIUM
     Indication: HYPOTHYROIDISM
     Dosage: ONE CAPLET DAILY;  FORM STRENGTH: 150MG; FORMULATION: CAPLET
     Route: 048

REACTIONS (2)
  - Off label use [Unknown]
  - Drug effect incomplete [Unknown]
